FAERS Safety Report 23270405 (Version 3)
Quarter: 2024Q2

REPORT INFORMATION
  Report Type: Spontaneous
  Country: US (occurrence: US)
  Receive Date: 20231207
  Receipt Date: 20240531
  Transmission Date: 20240716
  Serious: No
  Sender: FDA-Public Use
  Company Number: US-SA-SAC20231201001170

PATIENT
  Age: 53 Year
  Sex: Male

DRUGS (1)
  1. DUPIXENT [Suspect]
     Active Substance: DUPILUMAB
     Indication: Dermatitis atopic
     Dosage: 300 MG, QOW
     Route: 058
     Dates: start: 202308

REACTIONS (5)
  - Scar [Unknown]
  - Fatigue [Unknown]
  - Pruritus [Unknown]
  - Nasopharyngitis [Not Recovered/Not Resolved]
  - Injection site swelling [Unknown]
